FAERS Safety Report 8914691 (Version 1)
Quarter: 2012Q4

REPORT INFORMATION
  Report Type: 
  Country: US (occurrence: US)
  Receive Date: 20121116
  Receipt Date: 20121116
  Transmission Date: 20130627
  Serious: Yes (Hospitalization)
  Sender: FDA-Public Use
  Company Number: US-B.I. PHARMACEUTICALS,INC./RIDGEFIELD-2012-BI-00183BP

PATIENT
  Sex: Male
  Weight: 98 kg

DRUGS (4)
  1. SPIRIVA [Suspect]
     Indication: LUNG DISORDER
     Dosage: 18 mcg
     Route: 055
  2. ADVAIR [Concomitant]
     Indication: LUNG DISORDER
     Route: 055
  3. VENTOLIN [Concomitant]
     Indication: LUNG DISORDER
     Route: 055
  4. METHYLPREDNISOLONE [Concomitant]
     Dosage: 6 mg
     Route: 048

REACTIONS (5)
  - Pneumonia [Recovered/Resolved]
  - Diabetes mellitus [Not Recovered/Not Resolved]
  - Oedema peripheral [Not Recovered/Not Resolved]
  - Oxygen saturation decreased [Not Recovered/Not Resolved]
  - Rash [Not Recovered/Not Resolved]
